FAERS Safety Report 13891160 (Version 2)
Quarter: 2017Q3

REPORT INFORMATION
  Report Type: Spontaneous
  Country: US (occurrence: US)
  Receive Date: 20170822
  Receipt Date: 20170920
  Transmission Date: 20171127
  Serious: Yes (Other)
  Sender: FDA-Public Use
  Company Number: US-009507513-1708USA006554

PATIENT
  Age: 67 Year
  Sex: Male

DRUGS (12)
  1. DIAZEPAM. [Concomitant]
     Active Substance: DIAZEPAM
     Route: 048
  2. ZEPATIER [Suspect]
     Active Substance: ELBASVIR\GRAZOPREVIR
     Indication: THYROID DISORDER
     Dosage: 1 TABLET, QD
     Route: 048
     Dates: start: 20170620
  3. TYLENOL [Concomitant]
     Active Substance: ACETAMINOPHEN
     Route: 048
  4. MELOXICAM. [Concomitant]
     Active Substance: MELOXICAM
     Route: 048
  5. OMEPRAZOLE. [Concomitant]
     Active Substance: OMEPRAZOLE
  6. RENAGEL [Concomitant]
     Active Substance: SEVELAMER HYDROCHLORIDE
     Route: 048
  7. HYDROCODONE [Concomitant]
     Active Substance: HYDROCODONE
     Route: 048
  8. LEVOTHYROXINE SODIUM. [Concomitant]
     Active Substance: LEVOTHYROXINE SODIUM
     Route: 048
  9. RENVELA [Concomitant]
     Active Substance: SEVELAMER CARBONATE
     Route: 048
  10. TYLENOL [Concomitant]
     Active Substance: ACETAMINOPHEN
     Route: 048
  11. AMLODIPINE [Concomitant]
     Active Substance: AMLODIPINE BESYLATE
     Route: 048
  12. LYRICA [Concomitant]
     Active Substance: PREGABALIN
     Route: 048

REACTIONS (2)
  - Dyspnoea [Recovered/Resolved]
  - Product use in unapproved indication [Unknown]

NARRATIVE: CASE EVENT DATE: 2017
